APPROVED DRUG PRODUCT: TPN ELECTROLYTES IN PLASTIC CONTAINER
Active Ingredient: CALCIUM CHLORIDE; MAGNESIUM CHLORIDE; POTASSIUM CHLORIDE; SODIUM ACETATE; SODIUM CHLORIDE
Strength: 16.5MG/ML;25.4MG/ML;74.6MG/ML;121MG/ML;16.1MG/ML
Dosage Form/Route: INJECTABLE;INJECTION
Application: N018895 | Product #001
Applicant: HOSPIRA INC
Approved: Jul 20, 1984 | RLD: Yes | RS: Yes | Type: RX